FAERS Safety Report 6297731-8 (Version None)
Quarter: 2009Q3

REPORT INFORMATION
  Report Type: 
  Country: None (occurrence: None)
  Receive Date: 20090805
  Receipt Date: 20090728
  Transmission Date: 20100115
  Serious: Yes (Hospitalization)
  Sender: FDA-Public Use
  Company Number: US-MYLANLABS-2009S1013367

PATIENT
  Age: 72 Year
  Sex: Male
  Weight: 90.72 kg

DRUGS (8)
  1. CLONIDINE HYDROCHLORIDE [Suspect]
     Indication: BLOOD PRESSURE INCREASED
     Route: 048
     Dates: start: 20090501, end: 20090725
  2. CLONIDINE HYDROCHLORIDE [Suspect]
     Route: 048
     Dates: start: 20090501, end: 20090725
  3. CLONIDINE HYDROCHLORIDE [Suspect]
     Route: 048
     Dates: start: 20090726, end: 20090726
  4. CLONIDINE HYDROCHLORIDE [Suspect]
     Route: 048
     Dates: start: 20090726, end: 20090726
  5. CLONIDINE HYDROCHLORIDE [Suspect]
     Route: 048
     Dates: start: 20090727
  6. CLONIDINE HYDROCHLORIDE [Suspect]
     Route: 048
     Dates: start: 20090727
  7. ALISKIREN [Concomitant]
     Indication: BLOOD PRESSURE
     Route: 048
     Dates: start: 20080501
  8. DIOVAN [Concomitant]
     Indication: BLOOD PRESSURE
     Route: 048
     Dates: start: 20080501

REACTIONS (7)
  - ABDOMINAL PAIN UPPER [None]
  - BLOOD PRESSURE INCREASED [None]
  - DRUG EFFECT DECREASED [None]
  - DYSPEPSIA [None]
  - HEART RATE DECREASED [None]
  - OVERDOSE [None]
  - SOMNOLENCE [None]
